FAERS Safety Report 7769849 (Version 5)
Quarter: 2015Q4

REPORT INFORMATION
  Report Type: Spontaneous
  Country: US (occurrence: US)
  Receive Date: 20110121
  Receipt Date: 20151023
  Transmission Date: 20160305
  Serious: Yes (Hospitalization, Other)
  Sender: FDA-Public Use
  Company Number: US-BAYER-2011-006773

PATIENT
  Age: 26 Year
  Sex: Female
  Weight: 53.52 kg

DRUGS (7)
  1. CYMBALTA [Concomitant]
     Active Substance: DULOXETINE HYDROCHLORIDE
  2. CELEXA [Concomitant]
     Active Substance: CITALOPRAM HYDROBROMIDE
     Indication: ANXIETY
     Dosage: 20 MG, HS
  3. ATIVAN [Concomitant]
     Active Substance: LORAZEPAM
     Indication: ANXIETY
     Dosage: 0.5 MG, Q DAY (DAILY) TO B.I.D. (TWICE DAILY)
  4. NAPROXEN. [Concomitant]
     Active Substance: NAPROXEN
  5. YASMIN [Suspect]
     Active Substance: DROSPIRENONE\ETHINYL ESTRADIOL
     Indication: CONTRACEPTION
     Dosage: UNK
     Route: 048
     Dates: start: 200806, end: 200807
  6. YASMIN [Suspect]
     Active Substance: DROSPIRENONE\ETHINYL ESTRADIOL
     Indication: MENSTRUATION IRREGULAR
  7. IBUPROFEN [IBUPROFEN] [Concomitant]
     Active Substance: IBUPROFEN

REACTIONS (8)
  - Dyspnoea [None]
  - Pain [None]
  - Gastric ulcer [None]
  - Pulmonary infarction [None]
  - Pulmonary embolism [None]
  - Fear of death [None]
  - Pulmonary embolism [Recovered/Resolved]
  - Mental disorder [None]

NARRATIVE: CASE EVENT DATE: 20080710
